FAERS Safety Report 4882036-X (Version None)
Quarter: 2006Q1

REPORT INFORMATION
  Report Type: 
  Country: None (occurrence: None)
  Receive Date: 20060112
  Receipt Date: 20060103
  Transmission Date: 20060701
  Serious: Yes (Hospitalization)
  Sender: FDA-Public Use
  Company Number: 2006003922

PATIENT
  Age: 80 Year
  Sex: Female
  Weight: 67 kg

DRUGS (8)
  1. ALDACTONE [Suspect]
     Indication: ESSENTIAL HYPERTENSION
     Dosage: 1 DOSE FORM (INTERVAL:  EVERY DAY), ORAL
     Route: 048
     Dates: start: 20050101, end: 20060111
  2. FOSAMAX [Suspect]
     Indication: OSTEOPOROSIS
     Dosage: 1 DOSE FORM (INTERVAL:  EVERY DAY), ORAL
     Route: 048
     Dates: end: 20051026
  3. KARDEGIC (ACETYLSALICYLIC LYSINE) [Concomitant]
  4. GLUCOPHAGE [Concomitant]
  5. FUROSEMIDE [Concomitant]
  6. ADANCOR (NICORANDIL) [Concomitant]
  7. EUPANTOL (PANTOPRAZOLE) [Concomitant]
  8. OMEPRAZOLE [Concomitant]

REACTIONS (7)
  - ANOREXIA [None]
  - ASTHENIA [None]
  - DEHYDRATION [None]
  - GENERAL PHYSICAL HEALTH DETERIORATION [None]
  - HIATUS HERNIA [None]
  - HYPONATRAEMIA [None]
  - OESOPHAGITIS [None]
